FAERS Safety Report 4930919-4 (Version None)
Quarter: 2006Q1

REPORT INFORMATION
  Report Type: 
  Country: None (occurrence: None)
  Receive Date: 20060227
  Receipt Date: 20060215
  Transmission Date: 20060701
  Serious: Yes (Death)
  Sender: FDA-Public Use
  Company Number: B0409566A

PATIENT
  Age: 38 Year
  Sex: Female

DRUGS (7)
  1. RANITIDINE HYDROCHLORIDE (RANITIDINE HYDRCHLORIDE) [Suspect]
     Indication: PROPHYLAXIS
  2. CEPHAZOLIN SODIUM (CEPHAZOLIN SODIUM) [Suspect]
     Indication: PROPHYLAXIS
  3. METHYLPREDNISOLONE [Concomitant]
  4. KETOROLAC TROMETAMOL [Concomitant]
  5. ACETAMINOPHEN [Concomitant]
  6. DEXAMETHASONE [Concomitant]
  7. ANESTHA. FOR OP. PROCEDURE [Concomitant]

REACTIONS (18)
  - CARDIOGENIC SHOCK [None]
  - CHEST PAIN [None]
  - CYANOSIS [None]
  - DRUG HYPERSENSITIVITY [None]
  - DYSPNOEA [None]
  - ELECTROCARDIOGRAM ST SEGMENT DEPRESSION [None]
  - ELECTROCARDIOGRAM ST SEGMENT ELEVATION [None]
  - EOSINOPHILIC MYOCARDITIS [None]
  - HYPOKINESIA [None]
  - JUGULAR VEIN DISTENSION [None]
  - NORMOCHROMIC NORMOCYTIC ANAEMIA [None]
  - PALPITATIONS [None]
  - POST PROCEDURAL COMPLICATION [None]
  - PULMONARY CONGESTION [None]
  - RALES [None]
  - RESPIRATORY ARREST [None]
  - RESPIRATORY RATE INCREASED [None]
  - SINUS TACHYCARDIA [None]
